FAERS Safety Report 11172946 (Version 1)
Quarter: 2015Q2

REPORT INFORMATION
  Report Type: Spontaneous
  Country: AR (occurrence: AR)
  Receive Date: 20150608
  Receipt Date: 20150608
  Transmission Date: 20150821
  Serious: Yes (Death, Other)
  Sender: FDA-Public Use
  Company Number: AR-GLAXOSMITHKLINE INC.-AR2015GSK077925

PATIENT
  Sex: Male

DRUGS (2)
  1. REVOLADE [Suspect]
     Active Substance: ELTROMBOPAG
     Indication: STEM CELL TRANSPLANT
     Dosage: 25 MG, 1D
  2. REVOLADE [Suspect]
     Active Substance: ELTROMBOPAG
     Dosage: 75 MG, 1D
     Dates: start: 201503

REACTIONS (2)
  - Sepsis [Fatal]
  - Product use issue [Unknown]
